FAERS Safety Report 18305593 (Version 1)
Quarter: 2020Q3

REPORT INFORMATION
  Report Type: Spontaneous
  Country: US (occurrence: US)
  Receive Date: 20200923
  Receipt Date: 20200923
  Transmission Date: 20201103
  Serious: No
  Sender: FDA-Public Use
  Company Number: US-TEVA-2020-US-1830603

PATIENT
  Sex: Female

DRUGS (2)
  1. PROGESTERONE. [Suspect]
     Active Substance: PROGESTERONE
     Indication: MENOPAUSAL SYMPTOMS
     Dosage: 200 MILLIGRAM DAILY; FREQUENCY: AT BEDTIME
     Route: 048
  2. ESTRADIOL. [Suspect]
     Active Substance: ESTRADIOL
     Indication: MENOPAUSAL SYMPTOMS
     Dosage: 1 MILLIGRAM DAILY;
     Route: 048

REACTIONS (7)
  - Hot flush [Unknown]
  - Breast tenderness [Unknown]
  - Muscle spasms [Unknown]
  - Middle insomnia [Unknown]
  - Hyperhidrosis [Unknown]
  - Nausea [Unknown]
  - Feeling abnormal [Unknown]
